FAERS Safety Report 23816058 (Version 1)
Quarter: 2024Q2

REPORT INFORMATION
  Report Type: Spontaneous
  Country: US (occurrence: None)
  Receive Date: 20240503
  Receipt Date: 20240503
  Transmission Date: 20240716
  Serious: Yes (Death, Life-Threatening, Hospitalization, Disabling, Other)
  Sender: FDA-Public Use
  Company Number: None

PATIENT
  Age: 69 Year
  Sex: Female

DRUGS (1)
  1. YESCARTA [Suspect]
     Active Substance: AXICABTAGENE CILOLEUCEL
     Indication: Diffuse large B-cell lymphoma
     Dates: start: 20240318, end: 20240318

REACTIONS (10)
  - Cytokine release syndrome [None]
  - Immune effector cell-associated neurotoxicity syndrome [None]
  - Neurotoxicity [None]
  - Disease progression [None]
  - Mental status changes [None]
  - Cerebellar infarction [None]
  - Cardiovascular disorder [None]
  - Embolism [None]
  - Encephalopathy [None]
  - Disease complication [None]

NARRATIVE: CASE EVENT DATE: 20240318
